FAERS Safety Report 9437168 (Version 1)
Quarter: 2013Q3

REPORT INFORMATION
  Report Type: Spontaneous
  Country: US (occurrence: US)
  Receive Date: 20130802
  Receipt Date: 20130802
  Transmission Date: 20140515
  Serious: No
  Sender: FDA-Public Use
  Company Number: US-009507513-1308USA000777

PATIENT
  Sex: Male

DRUGS (2)
  1. CLARITIN [Suspect]
     Indication: RHINITIS
     Dosage: UNKNOWN
     Route: 048
  2. JANUVIA [Concomitant]
     Indication: TYPE 2 DIABETES MELLITUS
     Dosage: 100 MG, QD
     Route: 048

REACTIONS (1)
  - Drug ineffective [Unknown]
